FAERS Safety Report 6752452-X (Version None)
Quarter: 2010Q2

REPORT INFORMATION
  Report Type: 
  Country: None (occurrence: None)
  Receive Date: 20100602
  Receipt Date: 20100524
  Transmission Date: 20101027
  Serious: Yes (Other)
  Sender: FDA-Public Use
  Company Number: AU-ABBOTT-10P-008-0646942-00

PATIENT
  Age: 56 Year
  Sex: Male

DRUGS (3)
  1. RITONAVIR SOFT GELATIN CAPSULES [Interacting]
     Indication: DRUG USE FOR UNKNOWN INDICATION
  2. REYATAZ [Interacting]
     Indication: DRUG USE FOR UNKNOWN INDICATION
  3. SERETIDE ACCUHALER NOS [Suspect]
     Indication: DRUG USE FOR UNKNOWN INDICATION

REACTIONS (4)
  - BLOOD BILIRUBIN INCREASED [None]
  - CUSHING'S SYNDROME [None]
  - DRUG INTERACTION [None]
  - DRUG LEVEL INCREASED [None]
